FAERS Safety Report 15612232 (Version 4)
Quarter: 2018Q4

REPORT INFORMATION
  Report Type: Spontaneous
  Country: IL (occurrence: IL)
  Receive Date: 20181113
  Receipt Date: 20181128
  Transmission Date: 20190205
  Serious: No
  Sender: FDA-Public Use
  Company Number: IL-TEVA-2018-IL-975405

PATIENT
  Age: 23 Year
  Sex: Male

DRUGS (1)
  1. RESLIZUMAB [Suspect]
     Active Substance: RESLIZUMAB
     Indication: PRODUCT USED FOR UNKNOWN INDICATION
     Dosage: DOSAGE OF 3MG/KG FOR SEVERAL MONTHS
     Route: 065

REACTIONS (5)
  - Goitre [Unknown]
  - Pyrexia [Unknown]
  - Respiratory disorder [Unknown]
  - Thyroiditis [Unknown]
  - Swelling [Recovered/Resolved]

NARRATIVE: CASE EVENT DATE: 2018
